FAERS Safety Report 8616366-2 (Version None)
Quarter: 2012Q3

REPORT INFORMATION
  Report Type: 
  Country: None (occurrence: None)
  Receive Date: 20120823
  Receipt Date: 20120801
  Transmission Date: 20120928
  Serious: No
  Sender: FDA-Public Use
  Company Number: US-009507513-1208USA000695

PATIENT

DRUGS (1)
  1. IMPLANON [Suspect]
     Route: 059

REACTIONS (3)
  - MEDICAL DEVICE COMPLICATION [None]
  - INCORRECT DRUG ADMINISTRATION DURATION [None]
  - NO ADVERSE EVENT [None]
